FAERS Safety Report 15326039 (Version 1)
Quarter: 2018Q3

REPORT INFORMATION
  Report Type: Spontaneous
  Country: US (occurrence: US)
  Receive Date: 20180828
  Receipt Date: 20180828
  Transmission Date: 20181010
  Serious: No
  Sender: FDA-Public Use
  Company Number: US-ASTRAZENECA-2018SE98480

PATIENT
  Age: 25680 Day
  Sex: Male
  Weight: 88.5 kg

DRUGS (2)
  1. SYMBICORT [Suspect]
     Active Substance: BUDESONIDE\FORMOTEROL FUMARATE DIHYDRATE
     Indication: CHRONIC OBSTRUCTIVE PULMONARY DISEASE
     Dosage: DOSE AND FREQUENCY UNKNOWN
     Route: 055
     Dates: start: 2016
  2. SPRIVIA INHALER [Concomitant]
     Route: 055

REACTIONS (5)
  - Dyspnoea [Unknown]
  - Total lung capacity decreased [Unknown]
  - Device malfunction [Unknown]
  - Drug dose omission [Unknown]
  - Visual impairment [Unknown]

NARRATIVE: CASE EVENT DATE: 20180731
